FAERS Safety Report 8183448-1 (Version None)
Quarter: 2012Q1

REPORT INFORMATION
  Report Type: 
  Country: None (occurrence: None)
  Receive Date: 20120305
  Receipt Date: 20120224
  Transmission Date: 20120608
  Serious: Yes (Hospitalization)
  Sender: FDA-Public Use
  Company Number: US-BAYER-201019450NA

PATIENT
  Age: 18 Year
  Sex: Female
  Weight: 61 kg

DRUGS (6)
  1. NAPROXEN SODIUM [Concomitant]
     Dosage: 550 UNK, UNK
  2. FLUOXETINE [Concomitant]
  3. PREVIFEM-28 [Concomitant]
  4. ZITHROMAX [Concomitant]
     Route: 048
  5. YAZ [Suspect]
     Indication: PREMENSTRUAL SYNDROME
     Dosage: UNK UNK, QD
     Route: 048
     Dates: start: 20070201, end: 20070415
  6. YAZ [Suspect]
     Dosage: UNK
     Dates: start: 20070901, end: 20071001

REACTIONS (5)
  - BILIARY DYSKINESIA [None]
  - VOMITING [None]
  - ABDOMINAL PAIN [None]
  - BILIARY COLIC [None]
  - NAUSEA [None]
